FAERS Safety Report 5650615-8 (Version None)
Quarter: 2008Q1

REPORT INFORMATION
  Report Type: 
  Country: None (occurrence: None)
  Receive Date: 20080304
  Receipt Date: 20080304
  Transmission Date: 20080703
  Serious: Yes (Hospitalization)
  Sender: FDA-Public Use
  Company Number: None

PATIENT
  Sex: Male
  Weight: 70.3075 kg

DRUGS (1)
  1. CHANTIX [Suspect]
     Indication: SMOKING CESSATION THERAPY
     Dosage: 2MG  A DAY
     Dates: start: 20070901, end: 20080205

REACTIONS (16)
  - ABNORMAL DREAMS [None]
  - AMNESIA [None]
  - ANAEMIA [None]
  - CONSTIPATION [None]
  - CRYING [None]
  - DEPRESSION [None]
  - DIARRHOEA [None]
  - EMOTIONAL DISORDER [None]
  - FLIGHT OF IDEAS [None]
  - GASTRIC DISORDER [None]
  - INSOMNIA [None]
  - MANIA [None]
  - ORAL INTAKE REDUCED [None]
  - PSYCHOTIC BEHAVIOUR [None]
  - PSYCHOTIC DISORDER [None]
  - RASH [None]
